FAERS Safety Report 4565604-4 (Version None)
Quarter: 2005Q1

REPORT INFORMATION
  Report Type: 
  Country: None (occurrence: None)
  Receive Date: 20050126
  Receipt Date: 20050110
  Transmission Date: 20050727
  Serious: No
  Sender: FDA-Public Use
  Company Number: USA050187829

PATIENT
  Sex: Male

DRUGS (5)
  1. STRATTERA [Suspect]
     Indication: ATTENTION DEFICIT/HYPERACTIVITY DISORDER
     Dosage: 60 MG DAY
     Dates: start: 20040101, end: 20050106
  2. PROZAC [Suspect]
     Dosage: 40 MG DAY
  3. METAMUCIL (PLANTAGO OVATA) [Concomitant]
  4. QUESTRAN [Concomitant]
  5. WELLBUTRIN [Concomitant]

REACTIONS (1)
  - HEPATIC ENZYME INCREASED [None]
